FAERS Safety Report 25498739 (Version 1)
Quarter: 2025Q3

REPORT INFORMATION
  Report Type: Spontaneous
  Country: CN (occurrence: CN)
  Receive Date: 20250701
  Receipt Date: 20250701
  Transmission Date: 20251020
  Serious: Yes (Death, Life-Threatening, Other)
  Sender: ACS DOBFAR
  Company Number: CN-ACS-20250351

PATIENT
  Age: 64 Year
  Sex: Male

DRUGS (2)
  1. MEROPENEM [Suspect]
     Active Substance: MEROPENEM
     Indication: Klebsiella infection
  2. POLYMYXIN B [Suspect]
     Active Substance: POLYMYXIN B
     Indication: Klebsiella infection

REACTIONS (2)
  - Pathogen resistance [Fatal]
  - Off label use [Unknown]
